FAERS Safety Report 10235835 (Version 1)
Quarter: 2014Q2

REPORT INFORMATION
  Report Type: Spontaneous
  Country: KR (occurrence: KR)
  Receive Date: 20140613
  Receipt Date: 20140613
  Transmission Date: 20141212
  Serious: Yes (Other)
  Sender: FDA-Public Use
  Company Number: KR-BAYER-2014-086635

PATIENT
  Sex: 0

DRUGS (1)
  1. NIFEDIPINE (GITS) [Suspect]
     Route: 064

REACTIONS (5)
  - Breech presentation [None]
  - Foetal exposure during pregnancy [None]
  - Premature baby [None]
  - Caesarean section [None]
  - Maternal drugs affecting foetus [None]
